FAERS Safety Report 20513311 (Version 1)
Quarter: 2022Q1

REPORT INFORMATION
  Report Type: Spontaneous
  Country: US (occurrence: US)
  Receive Date: 20220224
  Receipt Date: 20220224
  Transmission Date: 20220423
  Serious: No
  Sender: FDA-Public Use
  Company Number: US-AMNEAL PHARMACEUTICALS-2021-AMRX-02265

PATIENT
  Age: 75 Year
  Sex: Female

DRUGS (3)
  1. RYTARY [Suspect]
     Active Substance: CARBIDOPA\LEVODOPA
     Indication: Parkinson^s disease
     Dosage: 48.75/195, 6 CAPSULES, DAILY
     Route: 048
     Dates: start: 20210602, end: 2021
  2. RYTARY [Suspect]
     Active Substance: CARBIDOPA\LEVODOPA
     Dosage: 48.75/195MG, AT 6AM 2 CAPSULES, 1CAPS AT 9:30AM AND 1 CAP AT 1PM
     Route: 048
     Dates: start: 2021
  3. RYTARY [Suspect]
     Active Substance: CARBIDOPA\LEVODOPA
     Dosage: 36.25/145MG, 1 CAP AT 9:30AM, 1CAP AT 1PM, 2 CAPS AT 4:30PM, 2 CAPS AT 8PM AND 1 CAPS AT 11PM
     Route: 048
     Dates: start: 2021

REACTIONS (1)
  - On and off phenomenon [Unknown]

NARRATIVE: CASE EVENT DATE: 20210601
